FAERS Safety Report 6648855-4 (Version None)
Quarter: 2010Q1

REPORT INFORMATION
  Report Type: 
  Country: None (occurrence: None)
  Receive Date: 20100324
  Receipt Date: 20100317
  Transmission Date: 20100710
  Serious: Yes (Other)
  Sender: FDA-Public Use
  Company Number: PHHY2010ES16119

PATIENT
  Age: 59 Year
  Sex: Female

DRUGS (1)
  1. ZOMETA [Suspect]
     Indication: BREAST NEOPLASM
     Dosage: 4 MG, QMO
     Route: 042
     Dates: start: 20080901, end: 20090506

REACTIONS (1)
  - OSTEONECROSIS [None]
